FAERS Safety Report 20615726 (Version 1)
Quarter: 2022Q1

REPORT INFORMATION
  Report Type: Spontaneous
  Country: TR (occurrence: TR)
  Receive Date: 20220321
  Receipt Date: 20220321
  Transmission Date: 20220423
  Serious: Yes (Other)
  Sender: FDA-Public Use
  Company Number: TR-JNJFOC-20220337965

PATIENT
  Age: 61 Year
  Sex: Female

DRUGS (7)
  1. PALIPERIDONE PALMITATE [Suspect]
     Active Substance: PALIPERIDONE PALMITATE
     Indication: Schizophrenia
     Dosage: DAY 0
     Route: 030
  2. PALIPERIDONE PALMITATE [Suspect]
     Active Substance: PALIPERIDONE PALMITATE
     Dosage: DAY 8
     Route: 030
  3. PALIPERIDONE PALMITATE [Suspect]
     Active Substance: PALIPERIDONE PALMITATE
     Route: 030
  4. RISPERIDONE [Concomitant]
     Active Substance: RISPERIDONE
  5. BIPERIDEN [Concomitant]
     Active Substance: BIPERIDEN
  6. QUETIAPINE [Concomitant]
     Active Substance: QUETIAPINE
  7. QUETIAPINE [Concomitant]
     Active Substance: QUETIAPINE

REACTIONS (2)
  - Cataract [Unknown]
  - Hallucination, auditory [Not Recovered/Not Resolved]
